FAERS Safety Report 6495049-1 (Version None)
Quarter: 2009Q4

REPORT INFORMATION
  Report Type: 
  Country: None (occurrence: None)
  Receive Date: 20091214
  Receipt Date: 20090429
  Transmission Date: 20100525
  Serious: No
  Sender: FDA-Public Use
  Company Number: US-BRISTOL-MYERS SQUIBB COMPANY-14598890

PATIENT
  Age: 87 Year
  Sex: Female
  Weight: 57 kg

DRUGS (7)
  1. ABILIFY [Suspect]
  2. ARICEPT [Concomitant]
     Indication: DEMENTIA
  3. SYNTHROID [Concomitant]
  4. PROZAC [Concomitant]
  5. ATACAND [Concomitant]
  6. HYDROCHLOROTHIAZIDE [Concomitant]
  7. POTASSIUM [Concomitant]

REACTIONS (6)
  - BLOOD PRESSURE INCREASED [None]
  - DECREASED APPETITE [None]
  - DEMENTIA [None]
  - DIZZINESS [None]
  - DRUG DISPENSING ERROR [None]
  - GAIT DISTURBANCE [None]
